FAERS Safety Report 7082726-7 (Version None)
Quarter: 2010Q4

REPORT INFORMATION
  Report Type: 
  Country: None (occurrence: None)
  Receive Date: 20101026
  Receipt Date: 20101015
  Transmission Date: 20110411
  Serious: Yes (Other)
  Sender: FDA-Public Use
  Company Number: 10-417

PATIENT
  Sex: Male

DRUGS (6)
  1. ALEVE [Suspect]
     Indication: PRODUCT USED FOR UNKNOWN INDICATION
     Dosage: 440 MG, DAILY, ORAL
     Route: 048
     Dates: start: 20100101, end: 20101010
  2. DIOVAN [Concomitant]
  3. NEXIUM [Concomitant]
  4. AMLODIPINE [Concomitant]
  5. CENTRUM VITAMINS [Concomitant]
  6. ASPIRIN [Concomitant]

REACTIONS (1)
  - THROAT TIGHTNESS [None]
